FAERS Safety Report 11219467 (Version 1)
Quarter: 2015Q2

REPORT INFORMATION
  Report Type: Spontaneous
  Country: US (occurrence: None)
  Receive Date: 20150624
  Receipt Date: 20150624
  Transmission Date: 20150821
  Serious: No
  Sender: FDA-Public Use
  Company Number: None

PATIENT
  Sex: Male
  Weight: 113.4 kg

DRUGS (4)
  1. INVEGA [Suspect]
     Active Substance: PALIPERIDONE
     Indication: DISSOCIATIVE IDENTITY DISORDER
     Route: 048
     Dates: start: 2010
  2. VITAMIN D [Concomitant]
     Active Substance: CHOLECALCIFEROL
  3. EQUATE [Concomitant]
     Active Substance: UNSPECIFIED INGREDIENT
  4. INVEGA [Suspect]
     Active Substance: PALIPERIDONE
     Indication: SCHIZOPHRENIA
     Route: 048
     Dates: start: 2010

REACTIONS (8)
  - Gynaecomastia [None]
  - Infection susceptibility increased [None]
  - Vomiting [None]
  - Dizziness [None]
  - Mastication disorder [None]
  - Dry mouth [None]
  - Musculoskeletal stiffness [None]
  - Constipation [None]
